FAERS Safety Report 4489579-1 (Version None)
Quarter: 2004Q4

REPORT INFORMATION
  Report Type: 
  Country: None (occurrence: None)
  Receive Date: 20041026
  Receipt Date: 20041012
  Transmission Date: 20050328
  Serious: Yes (Disabling)
  Sender: FDA-Public Use
  Company Number: GBS041015747

PATIENT
  Age: 59 Year
  Sex: Female
  Weight: 68 kg

DRUGS (2)
  1. RALOXIFENE HCL [Suspect]
     Indication: OSTEOPOROSIS
     Dosage: 60 MG DAY
     Dates: start: 20020301, end: 20040101
  2. CALCIUM [Concomitant]

REACTIONS (1)
  - RETINAL VEIN THROMBOSIS [None]
